FAERS Safety Report 14855847 (Version 1)
Quarter: 2018Q2

REPORT INFORMATION
  Report Type: Spontaneous
  Country: DE (occurrence: DE)
  Receive Date: 20180507
  Receipt Date: 20180507
  Transmission Date: 20180711
  Serious: Yes (Hospitalization)
  Sender: FDA-Public Use
  Company Number: DE-ALLERGAN-1824672US

PATIENT
  Age: 46 Year
  Sex: Female

DRUGS (1)
  1. FOSFOMYCIN TROMETHAMINE - BP [Suspect]
     Active Substance: FOSFOMYCIN TROMETHAMINE
     Indication: URINARY TRACT INFECTION
     Dosage: 3000 MG, SINGLE
     Route: 048
     Dates: start: 20180228, end: 20180228

REACTIONS (2)
  - Hepatitis cholestatic [Unknown]
  - Jaundice [Unknown]

NARRATIVE: CASE EVENT DATE: 20180301
